FAERS Safety Report 4647081-8 (Version None)
Quarter: 2005Q2

REPORT INFORMATION
  Report Type: 
  Country: None (occurrence: None)
  Receive Date: 20050331
  Receipt Date: 20050128
  Transmission Date: 20051028
  Serious: No
  Sender: FDA-Public Use
  Company Number: 05P-163-0288524-00

PATIENT
  Age: 72 Year
  Sex: Female
  Weight: 43.0917 kg

DRUGS (16)
  1. HUMIRA [Suspect]
     Indication: RHEUMATOID ARTHRITIS
     Dosage: 40 MG, 1 IN 1 WK, SUBCUTANEOUS
     Route: 058
     Dates: start: 20020101, end: 20050119
  2. ESTROGENS CONJUGATED [Concomitant]
  3. DILTIAZEM [Concomitant]
  4. SALMETEROL XINAFOATE [Concomitant]
  5. FLUTICASONE PROPIONATE [Concomitant]
  6. ASPIRIN [Concomitant]
  7. CALCIUM WITH VITAMIN D [Concomitant]
  8. DIGOXIN [Concomitant]
  9. FLECAINIDE ACETATE [Concomitant]
  10. LANSOPRAZOLE [Concomitant]
  11. VOLTAREN [Concomitant]
  12. MINOCYCLINE HCL [Concomitant]
  13. METHADONE [Concomitant]
  14. VICODIN [Concomitant]
  15. HYDROCHLOROTHIAZIDE [Concomitant]
  16. ALENDRONATE SODIUM [Concomitant]

REACTIONS (4)
  - NIGHT SWEATS [None]
  - PYREXIA [None]
  - RED BLOOD CELL SEDIMENTATION RATE INCREASED [None]
  - WHITE BLOOD CELL COUNT INCREASED [None]
